FAERS Safety Report 11517020 (Version 1)
Quarter: 2015Q3

REPORT INFORMATION
  Report Type: Spontaneous
  Country: US (occurrence: None)
  Receive Date: 20150916
  Receipt Date: 20150916
  Transmission Date: 20151125
  Serious: Yes (Other)
  Sender: FDA-Public Use
  Company Number: None

PATIENT
  Age: 26 Year
  Sex: Female
  Weight: 65.77 kg

DRUGS (3)
  1. MIRENA [Suspect]
     Active Substance: LEVONORGESTREL
     Indication: CONTRACEPTION
     Dates: start: 20150303, end: 20150904
  2. BIOTIN [Concomitant]
     Active Substance: BIOTIN
  3. GNC WOMENS MULTI-VITAMIN [Concomitant]

REACTIONS (2)
  - Alopecia [None]
  - Arthralgia [None]

NARRATIVE: CASE EVENT DATE: 20150303
